FAERS Safety Report 9167071 (Version 1)
Quarter: 2013Q1

REPORT INFORMATION
  Report Type: Spontaneous
  Country: US (occurrence: US)
  Receive Date: 20130318
  Receipt Date: 20130318
  Transmission Date: 20140127
  Serious: Yes (Other)
  Sender: FDA-Public Use
  Company Number: US-RANBAXY-2013US-66157

PATIENT
  Sex: Female

DRUGS (3)
  1. SOTRET [Suspect]
     Indication: PRODUCT USED FOR UNKNOWN INDICATION
     Dosage: UNK
     Route: 065
     Dates: start: 20071022, end: 200807
  2. ACCUTANE [Suspect]
     Indication: PRODUCT USED FOR UNKNOWN INDICATION
     Dosage: UNK
     Route: 065
     Dates: start: 20071022, end: 200807
  3. AMNESTEEM [Suspect]
     Indication: PRODUCT USED FOR UNKNOWN INDICATION
     Dosage: UNK
     Route: 065
     Dates: start: 20071022, end: 200807

REACTIONS (5)
  - Functional gastrointestinal disorder [Unknown]
  - Pain [Unknown]
  - Muscle spasms [Unknown]
  - Diarrhoea [Unknown]
  - Abdominal pain [Unknown]
